FAERS Safety Report 6845810-6 (Version None)
Quarter: 2010Q3

REPORT INFORMATION
  Report Type: 
  Country: None (occurrence: None)
  Receive Date: 20100713
  Receipt Date: 20100628
  Transmission Date: 20110219
  Serious: Yes (Death, Other)
  Sender: FDA-Public Use
  Company Number: MC201000201

PATIENT

DRUGS (4)
  1. ANGIOMAX [Suspect]
     Indication: PERCUTANEOUS CORONARY INTERVENTION
     Dosage: 0.75 MG/KG, INTRAVENOUS
     Route: 042
  2. ASPIRIN [Concomitant]
  3. CLOPIDOGREL [Concomitant]
  4. CLOPIDOGREL [Concomitant]

REACTIONS (6)
  - BLOOD PRODUCT TRANSFUSION DEPENDENT [None]
  - CARDIAC DEATH [None]
  - GASTROINTESTINAL HAEMORRHAGE [None]
  - HAEMATOCRIT DECREASED [None]
  - HAEMATOMA [None]
  - HAEMORRHAGE [None]
